FAERS Safety Report 21023254 (Version 1)
Quarter: 2022Q2

REPORT INFORMATION
  Report Type: Spontaneous
  Country: US (occurrence: None)
  Receive Date: 20220629
  Receipt Date: 20220629
  Transmission Date: 20220721
  Serious: Yes (Other)
  Sender: FDA-Public Use
  Company Number: None

PATIENT
  Sex: Female
  Weight: 112.95 kg

DRUGS (7)
  1. DUPIXENT [Suspect]
     Active Substance: DUPILUMAB
     Indication: Dermatitis atopic
     Dosage: FREQUENCY : EVERY OTHER WEEK;?
     Route: 058
     Dates: start: 20220614
  2. NOVOLOG [Concomitant]
     Active Substance: INSULIN ASPART
  3. TOUJEO [Concomitant]
     Active Substance: INSULIN GLARGINE
  4. clindamycin 1% external lotion [Concomitant]
  5. tacrolimus external ointment [Concomitant]
  6. TRIAMCINOLONE [Concomitant]
     Active Substance: TRIAMCINOLONE
  7. vitamin D 1000 units [Concomitant]

REACTIONS (5)
  - Pruritus [None]
  - Skin exfoliation [None]
  - Erythema [None]
  - Condition aggravated [None]
  - Periorbital swelling [None]
